FAERS Safety Report 4752399-4 (Version None)
Quarter: 2005Q3

REPORT INFORMATION
  Report Type: 
  Country: None (occurrence: None)
  Receive Date: 20050823
  Receipt Date: 20050808
  Transmission Date: 20060218
  Serious: Yes (Other)
  Sender: FDA-Public Use
  Company Number: 2005-0008618

PATIENT
  Age: 60 Year
  Sex: Male
  Weight: 67.8 kg

DRUGS (9)
  1. VIREAD [Suspect]
     Indication: HIV INFECTION
     Dosage: 300 MG, 1 IN 1 D, ORAL
     Route: 048
     Dates: start: 20030214, end: 20040112
  2. VIREAD [Suspect]
     Indication: HIV INFECTION
     Dosage: 300 MG, 1 IN 1 D, ORAL
     Route: 048
     Dates: start: 20040413, end: 20050606
  3. DDI (DIDANOSINE) [Concomitant]
  4. ATAZANAVIR (ATAZANAVIR) [Concomitant]
  5. KALETRA [Concomitant]
  6. RITONAVIR (RITONAVIR) [Concomitant]
  7. ZOLOFT [Concomitant]
  8. TEMAZEPAM [Concomitant]
  9. BACTRIM [Concomitant]

REACTIONS (5)
  - BLOOD BILIRUBIN INCREASED [None]
  - BLOOD CREATINE INCREASED [None]
  - BLOOD LACTIC ACID INCREASED [None]
  - MEDICATION ERROR [None]
  - PROTEIN URINE PRESENT [None]
